FAERS Safety Report 6835444-1 (Version None)
Quarter: 2010Q3

REPORT INFORMATION
  Report Type: 
  Country: None (occurrence: None)
  Receive Date: 20100712
  Receipt Date: 20100712
  Transmission Date: 20110219
  Serious: Yes (Other)
  Sender: FDA-Public Use
  Company Number: None

PATIENT
  Sex: Male

DRUGS (1)
  1. BANZEL [Suspect]
     Indication: EPILEPSY
     Dosage: 600MG BID ORAL
     Route: 048
     Dates: start: 20090301, end: 20091201

REACTIONS (2)
  - AGGRESSION [None]
  - AGITATION [None]
